FAERS Safety Report 13347131 (Version 4)
Quarter: 2017Q4

REPORT INFORMATION
  Report Type: Spontaneous
  Country: US (occurrence: US)
  Receive Date: 20170317
  Receipt Date: 20171020
  Transmission Date: 20180320
  Serious: Yes (Hospitalization, Other)
  Sender: FDA-Public Use
  Company Number: US-PFIZER INC-2017106920

PATIENT
  Sex: Male

DRUGS (9)
  1. VINCRISTINE SULFATE. [Suspect]
     Active Substance: VINCRISTINE SULFATE
     Indication: B-CELL TYPE ACUTE LEUKAEMIA
     Dosage: UNK
  2. CYTARABINE. [Suspect]
     Active Substance: CYTARABINE
     Indication: B-CELL TYPE ACUTE LEUKAEMIA
     Dosage: UNK
  3. METHYLPREDNISOLONE. [Suspect]
     Active Substance: METHYLPREDNISOLONE
     Indication: B-CELL TYPE ACUTE LEUKAEMIA
     Dosage: UNK
  4. DEXAMETHASONE. [Suspect]
     Active Substance: DEXAMETHASONE
     Indication: B-CELL TYPE ACUTE LEUKAEMIA
     Dosage: UNK
  5. NEURONTIN [Concomitant]
     Active Substance: GABAPENTIN
     Dosage: UNK
  6. DOXORUBICIN HCL [Suspect]
     Active Substance: DOXORUBICIN HYDROCHLORIDE
     Indication: B-CELL TYPE ACUTE LEUKAEMIA
     Dosage: UNK
  7. METHOTREXATE SODIUM. [Suspect]
     Active Substance: METHOTREXATE SODIUM
     Indication: B-CELL TYPE ACUTE LEUKAEMIA
     Dosage: UNK
  8. FOLINIC ACID [Suspect]
     Active Substance: LEUCOVORIN
     Indication: B-CELL TYPE ACUTE LEUKAEMIA
     Dosage: UNK
  9. CYCLOPHOSPHAMIDE. [Suspect]
     Active Substance: CYCLOPHOSPHAMIDE
     Indication: B-CELL TYPE ACUTE LEUKAEMIA
     Dosage: UNK

REACTIONS (5)
  - Neoplasm recurrence [Unknown]
  - Headache [Recovering/Resolving]
  - Cognitive disorder [Unknown]
  - Syncope [Unknown]
  - Depression [Recovering/Resolving]
